FAERS Safety Report 5260865-0 (Version None)
Quarter: 2007Q1

REPORT INFORMATION
  Report Type: 
  Country: None (occurrence: None)
  Receive Date: 20070309
  Receipt Date: 20070228
  Transmission Date: 20070707
  Serious: Yes (Disabling)
  Sender: FDA-Public Use
  Company Number: DE-ROCHE-472807

PATIENT
  Age: 72 Year
  Sex: Female
  Weight: 70 kg

DRUGS (2)
  1. BONVIVA [Suspect]
     Indication: OSTEOPOROSIS
     Route: 048
  2. RENACARE [Concomitant]
     Dosage: DETAILED DOSING INFORMATION: 10/25 MG PER DAY. REPORTED TRADE NAME: RENACA.
     Route: 048

REACTIONS (1)
  - RETINAL VEIN THROMBOSIS [None]
